FAERS Safety Report 6731445-2 (Version None)
Quarter: 2010Q2

REPORT INFORMATION
  Report Type: 
  Country: None (occurrence: None)
  Receive Date: 20100518
  Receipt Date: 20100518
  Transmission Date: 20101027
  Serious: Yes (Hospitalization)
  Sender: FDA-Public Use
  Company Number: None

PATIENT
  Age: 85 Year
  Sex: Male

DRUGS (1)
  1. ZOSYN [Suspect]
     Indication: PNEUMONIA
     Dosage: 3.375 GM Q6H IV BOLUS
     Route: 040
     Dates: start: 20100203, end: 20100211

REACTIONS (1)
  - THROMBOCYTOPENIA [None]
